FAERS Safety Report 12958001 (Version 1)
Quarter: 2016Q4

REPORT INFORMATION
  Report Type: Report from Study
  Country: US (occurrence: US)
  Receive Date: 20161120
  Receipt Date: 20161120
  Transmission Date: 20170207
  Serious: No
  Sender: FDA-Public Use
  Company Number: US-AMGEN-USASL2016157070

PATIENT
  Age: 67 Year
  Sex: Male

DRUGS (1)
  1. ENBREL [Suspect]
     Active Substance: ETANERCEPT
     Indication: PSORIATIC ARTHROPATHY
     Dosage: UNK UNK, QWK ON SUNDAY
     Route: 065
     Dates: start: 2010

REACTIONS (7)
  - Ear swelling [Unknown]
  - Injection site pain [Unknown]
  - Swelling [Unknown]
  - Hypoacusis [Unknown]
  - Underdose [Unknown]
  - Ear discomfort [Unknown]
  - Wrong technique in product usage process [Unknown]
